FAERS Safety Report 21632733 (Version 1)
Quarter: 2022Q4

REPORT INFORMATION
  Report Type: Report from Study
  Country: US (occurrence: US)
  Receive Date: 20221123
  Receipt Date: 20221123
  Transmission Date: 20230113
  Serious: No
  Sender: FDA-Public Use
  Company Number: US-ABBVIE-22K-163-4345095-00

PATIENT
  Sex: Male

DRUGS (1)
  1. IMBRUVICA [Suspect]
     Active Substance: IBRUTINIB
     Indication: Chronic lymphocytic leukaemia
     Route: 048

REACTIONS (5)
  - Acne [Not Recovered/Not Resolved]
  - Skin wound [Unknown]
  - Dyspepsia [Recovering/Resolving]
  - Hordeolum [Not Recovered/Not Resolved]
  - Muscle spasms [Not Recovered/Not Resolved]
